FAERS Safety Report 19660722 (Version 2)
Quarter: 2021Q4

REPORT INFORMATION
  Report Type: Spontaneous
  Country: US (occurrence: US)
  Receive Date: 20210805
  Receipt Date: 20211222
  Transmission Date: 20220303
  Serious: No
  Sender: FDA-Public Use
  Company Number: US-SA-SAC20210803000086

PATIENT
  Age: 56 Year
  Sex: Female

DRUGS (5)
  1. DUPIXENT [Suspect]
     Active Substance: DUPILUMAB
     Indication: Asthma
     Dosage: 300 MG/2ML, QOW
     Route: 058
     Dates: start: 20210121
  2. FLONASE [Concomitant]
     Active Substance: FLUTICASONE PROPIONATE
  3. VENTOLIN [Concomitant]
     Active Substance: ALBUTEROL SULFATE
  4. MONTELUKAST [Concomitant]
     Active Substance: MONTELUKAST SODIUM
     Indication: Asthma
  5. VENTOLIN HFA [Concomitant]
     Active Substance: ALBUTEROL SULFATE
     Indication: Asthma

REACTIONS (1)
  - Impaired quality of life [Unknown]

NARRATIVE: CASE EVENT DATE: 20210101
